FAERS Safety Report 6208583-6 (Version None)
Quarter: 2009Q2

REPORT INFORMATION
  Report Type: 
  Country: None (occurrence: None)
  Receive Date: 20090522
  Receipt Date: 20090220
  Transmission Date: 20091009
  Serious: No
  Sender: FDA-Public Use
  Company Number: 8043367

PATIENT
  Age: 53 Year
  Sex: Female
  Weight: 61.23 kg

DRUGS (6)
  1. CIMZIA [Suspect]
     Indication: CROHN'S DISEASE
     Dosage: 400 MG SC
     Route: 058
     Dates: start: 20090218
  2. ACTONEL [Concomitant]
  3. UNSPECIFIED ANTIBIOTIC [Concomitant]
  4. AZITRO [Concomitant]
  5. PROZAC [Concomitant]
  6. LOMOTIL [Concomitant]

REACTIONS (4)
  - FATIGUE [None]
  - HEADACHE [None]
  - HYPERSOMNIA [None]
  - MYALGIA [None]
